FAERS Safety Report 9152374 (Version 1)
Quarter: 2013Q1

REPORT INFORMATION
  Report Type: Spontaneous
  Country: DE (occurrence: DE)
  Receive Date: 20130308
  Receipt Date: 20130308
  Transmission Date: 20140127
  Serious: Yes (Death, Hospitalization)
  Sender: FDA-Public Use
  Company Number: DE-ELI_LILLY_AND_COMPANY-DE201302009572

PATIENT
  Age: 74 Year
  Sex: Female

DRUGS (6)
  1. ZYPREXA [Suspect]
     Indication: DELUSION
     Dosage: 2.5 MG, UNK
     Route: 048
     Dates: start: 20120820, end: 20120829
  2. ZYPREXA [Suspect]
     Dosage: 5 MG, UNK
     Route: 048
     Dates: start: 20120830, end: 20121031
  3. PREDNISOLONE [Concomitant]
     Indication: INFLAMMATION
     Dosage: 65 MG, UNK
     Dates: start: 20120925, end: 20121014
  4. PREDNISOLONE [Concomitant]
     Dosage: 50 MG, UNK
     Dates: start: 20121015, end: 20121028
  5. PREDNISOLONE [Concomitant]
     Dosage: 40 MG, UNK
     Dates: start: 20121029, end: 20121031
  6. OMEPRAZOLE [Concomitant]
     Dosage: 40 MG, UNK
     Dates: start: 20120925, end: 20121031

REACTIONS (2)
  - Pulmonary embolism [Fatal]
  - Cardiac arrest [Fatal]
